FAERS Safety Report 7162902-5 (Version None)
Quarter: 2010Q4

REPORT INFORMATION
  Report Type: 
  Country: None (occurrence: None)
  Receive Date: 20101215
  Receipt Date: 20100122
  Transmission Date: 20110411
  Serious: Yes (Death, Other)
  Sender: FDA-Public Use
  Company Number: LT-PFIZER INC-2007053360

PATIENT
  Age: 47 Year
  Sex: Male
  Weight: 90 kg

DRUGS (3)
  1. LAMOTRIGINE [Suspect]
     Indication: PARTIAL SEIZURES
     Dosage: UNK
     Route: 048
     Dates: start: 20070328, end: 20070609
  2. BLINDED *NO SUBJECT DRUG [Suspect]
     Indication: PARTIAL SEIZURES
     Dosage: UNK
     Route: 048
     Dates: start: 20070328, end: 20070609
  3. PREGABALIN [Suspect]
     Indication: PARTIAL SEIZURES
     Dosage: UNK
     Route: 048
     Dates: start: 20070328, end: 20070609

REACTIONS (1)
  - DROWNING [None]
